FAERS Safety Report 4282080-X (Version None)
Quarter: 2004Q1

REPORT INFORMATION
  Report Type: 
  Country: None (occurrence: None)
  Receive Date: 20040130
  Receipt Date: 20030307
  Transmission Date: 20041129
  Serious: No
  Sender: FDA-Public Use
  Company Number: US-BRISTOL-MYERS SQUIBB COMPANY-12206116

PATIENT
  Age: 54 Year
  Sex: Male
  Weight: 118 kg

DRUGS (2)
  1. DESYREL [Suspect]
     Dosage: TOOK FIFTY 50MG TABS AT ONE TIME 2 YEARS AGO.
     Route: 048
  2. TENORMIN [Suspect]
     Route: 048

REACTIONS (4)
  - CHILLS [None]
  - HALLUCINATION [None]
  - INTENTIONAL OVERDOSE [None]
  - SUICIDE ATTEMPT [None]
